FAERS Safety Report 5563540-8 (Version None)
Quarter: 2007Q4

REPORT INFORMATION
  Report Type: 
  Country: None (occurrence: None)
  Receive Date: 20071217
  Receipt Date: 20070531
  Transmission Date: 20080405
  Serious: No
  Sender: FDA-Public Use
  Company Number: US-ASTRAZENECA-2007UW13302

PATIENT
  Age: 26181 Day
  Sex: Male
  Weight: 89.8 kg

DRUGS (4)
  1. CRESTOR [Suspect]
     Route: 048
     Dates: start: 20070516
  2. LOTREL [Concomitant]
  3. ATENOLOL [Concomitant]
  4. AMIODARONE HCL [Concomitant]

REACTIONS (2)
  - HEADACHE [None]
  - PYREXIA [None]
